FAERS Safety Report 15333170 (Version 1)
Quarter: 2018Q3

REPORT INFORMATION
  Report Type: Spontaneous
  Country: US (occurrence: US)
  Receive Date: 20180824
  Receipt Date: 20180824
  Transmission Date: 20181010
  Serious: No
  Sender: FDA-Public Use
  Company Number: None

PATIENT
  Age: 38 Year
  Sex: Male
  Weight: 90 kg

DRUGS (4)
  1. MAXIMUM STRENTH NASAL [Suspect]
     Active Substance: OXYMETAZOLINE HYDROCHLORIDE
     Indication: NASAL DECONGESTION THERAPY
     Dosage: ?          QUANTITY:3 SPRAY(S);?
     Route: 055
     Dates: start: 20180824, end: 20180824
  2. MULTI VITAMIN [Concomitant]
     Active Substance: VITAMINS
  3. COQ10 [Concomitant]
     Active Substance: UBIDECARENONE
  4. VITAMIN D [Concomitant]
     Active Substance: CHOLECALCIFEROL

REACTIONS (8)
  - Instillation site pain [None]
  - Throat irritation [None]
  - Chemical burn of respiratory tract [None]
  - Productive cough [None]
  - Neck pain [None]
  - Nausea [None]
  - Ear discomfort [None]
  - Pharyngeal oedema [None]

NARRATIVE: CASE EVENT DATE: 20180824
